FAERS Safety Report 17828653 (Version 1)
Quarter: 2020Q2

REPORT INFORMATION
  Report Type: Spontaneous
  Country: US (occurrence: US)
  Receive Date: 20200527
  Receipt Date: 20200527
  Transmission Date: 20200714
  Serious: No
  Sender: FDA-Public Use
  Company Number: US-LUPIN PHARMACEUTICALS INC.-2020-01976

PATIENT
  Age: 81 Year
  Sex: Female
  Weight: 86.17 kg

DRUGS (1)
  1. BUDESONIDE INHALATION SUSPENSION, 0.5 MG/2 ML [Suspect]
     Active Substance: BUDESONIDE
     Indication: ASTHMA
     Dosage: UNK, BID (0.5 MG/2 ML)
     Dates: start: 20200424, end: 20200426

REACTIONS (3)
  - Oropharyngeal discomfort [Not Recovered/Not Resolved]
  - Dysphagia [Not Recovered/Not Resolved]
  - Wrong device used [Unknown]

NARRATIVE: CASE EVENT DATE: 20200424
